FAERS Safety Report 18639939 (Version 1)
Quarter: 2020Q4

REPORT INFORMATION
  Report Type: Spontaneous
  Country: US (occurrence: US)
  Receive Date: 20201220
  Receipt Date: 20201220
  Transmission Date: 20210114
  Serious: Yes (Other)
  Sender: FDA-Public Use
  Company Number: US-PACIRA-202000031

PATIENT
  Age: 56 Year
  Sex: Male

DRUGS (2)
  1. LIDOCAINE. [Suspect]
     Active Substance: LIDOCAINE
     Indication: ROTATOR CUFF REPAIR
     Dosage: UNKNOWN DOSE INJECTED INTO INCISIONS AT TIME OF SURGERY
     Dates: start: 20191118, end: 20191118
  2. EXPAREL [Suspect]
     Active Substance: BUPIVACAINE
     Indication: ROTATOR CUFF REPAIR
     Dosage: UNKNOWN
     Route: 065
     Dates: start: 20191118, end: 20191118

REACTIONS (5)
  - Hypotension [Recovered/Resolved]
  - Hypoaesthesia [Recovered/Resolved]
  - Loss of consciousness [Recovered/Resolved]
  - Labelled drug-drug interaction medication error [Unknown]
  - Seizure [Recovered/Resolved]
